FAERS Safety Report 7604486-0 (Version None)
Quarter: 2011Q3

REPORT INFORMATION
  Report Type: 
  Country: None (occurrence: None)
  Receive Date: 20110712
  Receipt Date: 20110630
  Transmission Date: 20111222
  Serious: Yes (Hospitalization)
  Sender: FDA-Public Use
  Company Number: FR-ELI_LILLY_AND_COMPANY-FR201106008801

PATIENT
  Sex: Male

DRUGS (6)
  1. AVASTIN [Concomitant]
     Dosage: 15MG/M2
     Route: 042
     Dates: start: 20100907, end: 20101110
  2. CISPLATIN [Concomitant]
     Dosage: 75MG/M2
     Route: 042
     Dates: start: 20100907, end: 20101110
  3. NEXIUM [Concomitant]
  4. CRESTOR [Concomitant]
  5. ALIMTA [Suspect]
     Indication: LUNG NEOPLASM MALIGNANT
     Dosage: 500 MG/M2, UNK
     Route: 042
     Dates: start: 20100907, end: 20101111
  6. NEULASTA [Concomitant]
     Dosage: UNK
     Route: 042
     Dates: start: 20100910, end: 20101113

REACTIONS (3)
  - PNEUMOTHORAX [None]
  - BRONCHITIS [None]
  - DEEP VEIN THROMBOSIS [None]
